FAERS Safety Report 5580648-1 (Version None)
Quarter: 2007Q4

REPORT INFORMATION
  Report Type: 
  Country: None (occurrence: None)
  Receive Date: 20071130
  Receipt Date: 20070711
  Transmission Date: 20080405
  Serious: No
  Sender: FDA-Public Use
  Company Number: US200707002455

PATIENT
  Age: 58 Year
  Sex: Female
  Weight: 84.8 kg

DRUGS (8)
  1. BYETTA [Suspect]
     Indication: TYPE 2 DIABETES MELLITUS
     Dosage: 5 UG, 2/D, 10 UG, 2/D, SUBCUTANEOUS
     Route: 058
     Dates: start: 20060201, end: 20060401
  2. BYETTA [Suspect]
     Indication: TYPE 2 DIABETES MELLITUS
     Dosage: 5 UG, 2/D, 10 UG, 2/D, SUBCUTANEOUS
     Route: 058
     Dates: start: 20060401
  3. PRANDIN [Concomitant]
  4. LEVEMIR (INSULIN DETEMIR) [Concomitant]
  5. METFORMIN HCL [Concomitant]
  6. PRECOSE [Concomitant]
  7. LANTUS [Concomitant]
  8. NOVOLOG [Concomitant]

REACTIONS (13)
  - BLOOD GLUCOSE DECREASED [None]
  - BLOOD GLUCOSE INCREASED [None]
  - DECREASED APPETITE [None]
  - DRUG EFFECT DECREASED [None]
  - FEELING ABNORMAL [None]
  - FLATULENCE [None]
  - GLYCOSYLATED HAEMOGLOBIN INCREASED [None]
  - INSOMNIA [None]
  - NAUSEA [None]
  - PARAESTHESIA [None]
  - SOMNOLENCE [None]
  - VOMITING [None]
  - WEIGHT INCREASED [None]
